FAERS Safety Report 4634285-3 (Version None)
Quarter: 2005Q2

REPORT INFORMATION
  Report Type: 
  Country: None (occurrence: None)
  Receive Date: 20050411
  Receipt Date: 20050401
  Transmission Date: 20051028
  Serious: Yes (Other)
  Sender: FDA-Public Use
  Company Number: JP-2005-004635

PATIENT
  Age: 85 Year
  Sex: Male
  Weight: 67.6 kg

DRUGS (1)
  1. MAGNEVIST [Suspect]
     Indication: NUCLEAR MAGNETIC RESONANCE IMAGING
     Dosage: 1 DOSE, INTRAVENOUS
     Route: 042
     Dates: start: 20050323, end: 20050323

REACTIONS (3)
  - ANAEMIA [None]
  - ASTHMA [None]
  - CONTRAST MEDIA REACTION [None]
